FAERS Safety Report 7783093-3 (Version None)
Quarter: 2011Q3

REPORT INFORMATION
  Report Type: 
  Country: None (occurrence: None)
  Receive Date: 20110928
  Receipt Date: 20110922
  Transmission Date: 20111222
  Serious: No
  Sender: FDA-Public Use
  Company Number: US-PFIZER INC-2011226990

PATIENT
  Sex: Male

DRUGS (2)
  1. ARTANE [Suspect]
     Dosage: UNK
  2. CARBATROL [Interacting]
     Dosage: UNK

REACTIONS (2)
  - DRUG INTERACTION [None]
  - PYREXIA [None]
